FAERS Safety Report 19279838 (Version 1)
Quarter: 2021Q2

REPORT INFORMATION
  Report Type: Spontaneous
  Country: US (occurrence: US)
  Receive Date: 20210520
  Receipt Date: 20210520
  Transmission Date: 20210717
  Serious: No
  Sender: FDA-Public Use
  Company Number: NVSC2021US109418

PATIENT
  Age: 41 Year

DRUGS (2)
  1. MAYZENT [Suspect]
     Active Substance: SIPONIMOD
     Indication: MULTIPLE SCLEROSIS
     Dosage: UNK
     Route: 065
     Dates: end: 20210308
  2. MAYZENT [Suspect]
     Active Substance: SIPONIMOD
     Dosage: UNK
     Route: 065

REACTIONS (2)
  - White blood cell count decreased [Recovering/Resolving]
  - Bundle branch block right [Recovering/Resolving]

NARRATIVE: CASE EVENT DATE: 20210510
